FAERS Safety Report 5733621-4 (Version None)
Quarter: 2008Q2

REPORT INFORMATION
  Report Type: 
  Country: None (occurrence: None)
  Receive Date: 20080509
  Receipt Date: 20080505
  Transmission Date: 20081010
  Serious: Yes (Hospitalization, Other)
  Sender: FDA-Public Use
  Company Number: US-PFIZER INC-2008005091

PATIENT
  Sex: Male
  Weight: 88.5 kg

DRUGS (1)
  1. BEXTRA [Suspect]
     Indication: ANALGESIA
     Route: 048

REACTIONS (4)
  - ANXIETY [None]
  - CEREBROVASCULAR ACCIDENT [None]
  - DEPRESSION [None]
  - RASH PRURITIC [None]
